FAERS Safety Report 7713914-1 (Version None)
Quarter: 2011Q3

REPORT INFORMATION
  Report Type: 
  Country: None (occurrence: None)
  Receive Date: 20110826
  Receipt Date: 20110822
  Transmission Date: 20111222
  Serious: Yes (Other)
  Sender: FDA-Public Use
  Company Number: US-PFIZER INC-2011185882

PATIENT
  Sex: Female
  Weight: 86.168 kg

DRUGS (9)
  1. LYRICA [Suspect]
     Indication: NEURALGIA
     Dosage: 100 MG, 2X/DAY
  2. NEURONTIN [Suspect]
     Dosage: 800 MG, 2X/DAY
  3. FOLIC ACID [Concomitant]
     Dosage: 2 MG, DAILY
  4. NEURONTIN [Suspect]
     Indication: NEURALGIA
     Dosage: 800 MG, 2X/DAY
  5. LYRICA [Suspect]
     Dosage: 100 MG, 2X/DAY
  6. PRAVASTATIN [Suspect]
     Indication: BLOOD CHOLESTEROL ABNORMAL
     Dosage: 40 MG, DAILY
  7. CELEBREX [Suspect]
     Indication: ARTHRITIS
     Dosage: 100 MG, DAILY
     Route: 048
  8. DETROL LA [Suspect]
     Indication: INCONTINENCE
     Dosage: 4 MG, DAILY
     Route: 048
  9. CELEBREX [Suspect]
     Indication: SPINAL OPERATION

REACTIONS (1)
  - MUSCULOSKELETAL STIFFNESS [None]
